FAERS Safety Report 7430778-4 (Version None)
Quarter: 2011Q2

REPORT INFORMATION
  Report Type: 
  Country: None (occurrence: None)
  Receive Date: 20110419
  Receipt Date: 20110419
  Transmission Date: 20111010
  Serious: No
  Sender: FDA-Public Use
  Company Number: None

PATIENT
  Age: 66 Year
  Sex: Male

DRUGS (5)
  1. ACTOS [Concomitant]
  2. REVLIMID [Suspect]
     Indication: MULTIPLE MYELOMA
     Dosage: 5MG QD EVERY OTHER WEEK ORALLY
     Route: 048
  3. HYDROCHLOROTHIAZIDE [Concomitant]
  4. NOVOLIN 70/30 [Concomitant]
  5. AMLODIPINE BESYLATE [Concomitant]

REACTIONS (1)
  - RASH [None]
